FAERS Safety Report 23708852 (Version 1)
Quarter: 2024Q2

REPORT INFORMATION
  Report Type: Spontaneous
  Country: US (occurrence: US)
  Receive Date: 20240404
  Receipt Date: 20240404
  Transmission Date: 20240716
  Serious: No
  Sender: FDA-Public Use
  Company Number: US-TG THERAPEUTICS INC.-TGT003276

PATIENT

DRUGS (2)
  1. BRIUMVI [Suspect]
     Active Substance: UBLITUXIMAB-XIIY
     Indication: Multiple sclerosis
     Dosage: UNK
     Route: 042
     Dates: start: 2023, end: 2023
  2. NUVIGIL [Suspect]
     Active Substance: ARMODAFINIL
     Indication: Fatigue
     Dosage: UNK
     Dates: start: 2023

REACTIONS (7)
  - Disturbance in attention [Unknown]
  - Frustration tolerance decreased [Unknown]
  - Discomfort [Unknown]
  - Cognitive disorder [Unknown]
  - Brain fog [Unknown]
  - Fatigue [Unknown]
  - Drug ineffective [Unknown]
